FAERS Safety Report 7242863-0 (Version None)
Quarter: 2011Q1

REPORT INFORMATION
  Report Type: 
  Country: None (occurrence: None)
  Receive Date: 20110125
  Receipt Date: 20110117
  Transmission Date: 20110831
  Serious: Yes (Hospitalization)
  Sender: FDA-Public Use
  Company Number: IT-JNJFOC-20110101259

PATIENT
  Sex: Male

DRUGS (11)
  1. ATORVASTATIN [Concomitant]
     Indication: ILL-DEFINED DISORDER
  2. BUSCOPAN [Concomitant]
     Indication: ILL-DEFINED DISORDER
  3. CHLORPROMAZINE HYDROCHLORIDE [Concomitant]
     Indication: ILL-DEFINED DISORDER
  4. NORADRENALINE [Concomitant]
     Indication: ILL-DEFINED DISORDER
  5. CLOPIDOGREL [Concomitant]
     Indication: ILL-DEFINED DISORDER
  6. RILATEN [Concomitant]
     Indication: ILL-DEFINED DISORDER
  7. REOPRO [Suspect]
     Indication: ILL-DEFINED DISORDER
     Route: 042
  8. REOPRO [Suspect]
     Route: 042
  9. ADRENALINE [Concomitant]
     Indication: ILL-DEFINED DISORDER
  10. LASIX [Concomitant]
     Indication: ILL-DEFINED DISORDER
  11. ACETYLSALICYLIC ACID [Concomitant]
     Indication: ILL-DEFINED DISORDER

REACTIONS (3)
  - THROMBOCYTOPENIA [None]
  - HAEMOGLOBIN DECREASED [None]
  - LEUKOPENIA [None]
